FAERS Safety Report 12861980 (Version 1)
Quarter: 2016Q4

REPORT INFORMATION
  Report Type: Spontaneous
  Country: US (occurrence: US)
  Receive Date: 20161019
  Receipt Date: 20161019
  Transmission Date: 20170207
  Serious: Yes (Life-Threatening)
  Sender: FDA-Public Use
  Company Number: US-ALK ABELLO INC-1058516

PATIENT
  Sex: Female

DRUGS (1)
  1. VARIOUS UNSPECIFIED ALK ALLERGEN EXTRACTS [Suspect]
     Active Substance: ALLERGENIC EXTRACTS
     Route: 058
     Dates: start: 20160502

REACTIONS (4)
  - Pruritus [Recovered/Resolved]
  - Urticaria [Recovered/Resolved]
  - Swelling [Recovered/Resolved]
  - Emotional distress [Recovered/Resolved]
